FAERS Safety Report 13363158 (Version 2)
Quarter: 2017Q1

REPORT INFORMATION
  Report Type: Spontaneous
  Country: US (occurrence: US)
  Receive Date: 20170323
  Receipt Date: 20170327
  Transmission Date: 20170429
  Serious: Yes (Other)
  Sender: FDA-Public Use
  Company Number: US-CELGENEUS-USA-2017036815

PATIENT
  Age: 87 Year
  Sex: Female
  Weight: 26.79 kg

DRUGS (1)
  1. REVLIMID [Suspect]
     Active Substance: LENALIDOMIDE
     Indication: PLASMA CELL MYELOMA
     Dosage: 10 MILLIGRAM
     Route: 048
     Dates: start: 20160928

REACTIONS (4)
  - Fall [Unknown]
  - Dehydration [Unknown]
  - Erythema [Unknown]
  - Dementia [Unknown]

NARRATIVE: CASE EVENT DATE: 20170220
